FAERS Safety Report 16816706 (Version 1)
Quarter: 2019Q3

REPORT INFORMATION
  Report Type: Spontaneous
  Country: US (occurrence: US)
  Receive Date: 20190917
  Receipt Date: 20190917
  Transmission Date: 20191005
  Serious: No
  Sender: FDA-Public Use
  Company Number: US-ALLERGAN-1931497US

PATIENT
  Age: 86 Year
  Sex: Female

DRUGS (11)
  1. LINZESS [Suspect]
     Active Substance: LINACLOTIDE
     Indication: IRRITABLE BOWEL SYNDROME
     Dosage: 145 ?G, QD
     Dates: start: 20190723
  2. METAMUCIL [Concomitant]
     Active Substance: PLANTAGO SEED
     Dosage: UNK
  3. POTASSIUM [Concomitant]
     Active Substance: POTASSIUM
     Dosage: UNK
  4. AMOXICILLIN. [Concomitant]
     Active Substance: AMOXICILLIN
     Dosage: 2000 MG BEFORE DENTAL PROCEDURES
  5. MAGNESSIUM CARBONATE [Concomitant]
     Dosage: UNK
  6. SENNA [Concomitant]
     Active Substance: SENNA LEAF\SENNOSIDES\SENNOSIDES A AND B
     Dosage: UNK, QHS
     Route: 048
  7. AMITIZA [Concomitant]
     Active Substance: LUBIPROSTONE
     Indication: IRRITABLE BOWEL SYNDROME
  8. ALLERGY MEDICATION [Concomitant]
     Active Substance: DIPHENHYDRAMINE HYDROCHLORIDE
     Dosage: UNK
  9. LAXATAN A [Concomitant]
     Dosage: UNK
  10. OTHER CONSTIPATION [Concomitant]
     Indication: CONSTIPATION
  11. VITAMIN D [Concomitant]
     Active Substance: VITAMIN D NOS
     Dosage: UNK

REACTIONS (9)
  - Defaecation urgency [Recovered/Resolved]
  - Dizziness [Unknown]
  - Inappropriate schedule of product administration [Unknown]
  - Presyncope [Recovered/Resolved]
  - Tremor [Recovered/Resolved]
  - Cold sweat [Recovered/Resolved]
  - Blood glucose decreased [Recovered/Resolved]
  - Anxiety disorder due to a general medical condition [Recovered/Resolved]
  - Syncope [Unknown]
